FAERS Safety Report 4411859-6 (Version None)
Quarter: 2004Q3

REPORT INFORMATION
  Report Type: 
  Country: None (occurrence: None)
  Receive Date: 20040728
  Receipt Date: 20040715
  Transmission Date: 20050211
  Serious: Yes (Other)
  Sender: FDA-Public Use
  Company Number: US-JNJFOC-20040704548

PATIENT
  Age: 32 Year
  Sex: Male

DRUGS (3)
  1. DURAGESIC [Suspect]
     Indication: PAIN
     Dosage: 75 UG/HR, 1 IN 72 HOUR, TRANSDERMAL
     Route: 062
     Dates: start: 20040601
  2. BENAZEPRIL HCL [Concomitant]
  3. PAXIL [Concomitant]

REACTIONS (3)
  - HYPERTENSION [None]
  - PALPITATIONS [None]
  - RASH [None]
